FAERS Safety Report 6312830-X (Version None)
Quarter: 2009Q3

REPORT INFORMATION
  Report Type: 
  Country: None (occurrence: None)
  Receive Date: 20090814
  Receipt Date: 20090806
  Transmission Date: 20100115
  Serious: Yes (Hospitalization)
  Sender: FDA-Public Use
  Company Number: 2009SP001991

PATIENT
  Age: 20 Year
  Sex: Female
  Weight: 152 kg

DRUGS (7)
  1. LUNESTA [Suspect]
     Indication: INSOMNIA
     Dosage: ORAL
     Route: 048
     Dates: start: 20090609, end: 20090728
  2. CLONIDINE [Suspect]
     Dates: start: 20090729
  3. EFFEXOR /01233802/ [Concomitant]
  4. GEODON /01487002/ [Concomitant]
  5. VITAMIN A [Concomitant]
  6. OMEGA-3 TRIGLYCERIDE [Concomitant]
  7. VITAMINS [Concomitant]

REACTIONS (3)
  - DEPRESSION [None]
  - MULTIPLE DRUG OVERDOSE [None]
  - SUICIDE ATTEMPT [None]
